FAERS Safety Report 9308215 (Version 1)
Quarter: 2013Q2

REPORT INFORMATION
  Report Type: Spontaneous
  Country: US (occurrence: US)
  Receive Date: 20130523
  Receipt Date: 20130523
  Transmission Date: 20140414
  Serious: Yes (Other)
  Sender: FDA-Public Use
  Company Number: US-RB-053998-13

PATIENT
  Age: 0 Year
  Sex: Male
  Weight: 3.34 kg

DRUGS (2)
  1. SUBOXONE FILM [Suspect]
     Dosage: SUBOXONE FLLM; 1-2 MG DAILY
     Route: 064
     Dates: start: 201207, end: 20130501
  2. SUBOXONE FILM [Suspect]
     Indication: DRUG DEPENDENCE
     Dosage: SUBOXONE FILM; 1-2 MG DAILY
     Route: 063
     Dates: start: 20130501

REACTIONS (3)
  - Foetal exposure during pregnancy [Recovered/Resolved]
  - Exposure during breast feeding [Not Recovered/Not Resolved]
  - Myoclonus [Not Recovered/Not Resolved]
